FAERS Safety Report 11251274 (Version 1)
Quarter: 2015Q3

REPORT INFORMATION
  Report Type: Spontaneous
  Country: AE (occurrence: AE)
  Receive Date: 20150708
  Receipt Date: 20150708
  Transmission Date: 20151125
  Serious: Yes (Other)
  Sender: FDA-Public Use
  Company Number: AE-BAYER-2015-371887

PATIENT
  Age: 22 Year
  Sex: Female

DRUGS (1)
  1. ACETYLSALICYLIC ACID({=100 MG) [Suspect]
     Active Substance: ASPIRIN
     Indication: PRE-ECLAMPSIA

REACTIONS (4)
  - Gestational diabetes [None]
  - Foetal hypokinesia [None]
  - Maternal exposure during pregnancy [None]
  - Gestational hypertension [None]
